FAERS Safety Report 5637886-9 (Version None)
Quarter: 2008Q1

REPORT INFORMATION
  Report Type: 
  Country: None (occurrence: None)
  Receive Date: 20080220
  Receipt Date: 20080208
  Transmission Date: 20080703
  Serious: Yes (Other)
  Sender: FDA-Public Use
  Company Number: CHPA2008US02608

PATIENT
  Age: 11 Year
  Sex: Male
  Weight: 50.8 kg

DRUGS (2)
  1. THERAFLU VAPOR PATCH (NCH)(EUCALYPTUS OIL, CAMPHOR, MENTHOL) PATCH [Suspect]
     Indication: UPPER RESPIRATORY TRACT CONGESTION
     Dosage: 1 DF, QHS, VIA FALSA
     Dates: start: 20060203
  2. TRIAMINIC DAY TIME COLD + COUGH (NCH)(DEXTROMETHORPHAN HYDROBROMIDE, P [Suspect]
     Indication: UPPER RESPIRATORY TRACT CONGESTION
     Dosage: 2 TSP, ORAL
     Route: 048

REACTIONS (5)
  - PAIN OF SKIN [None]
  - PRURITUS [None]
  - RASH PAPULAR [None]
  - SWELLING [None]
  - WRONG TECHNIQUE IN DRUG USAGE PROCESS [None]
